FAERS Safety Report 9435869 (Version 1)
Quarter: 2013Q3

REPORT INFORMATION
  Report Type: Spontaneous
  Country: HU (occurrence: HU)
  Receive Date: 20130801
  Receipt Date: 20130801
  Transmission Date: 20140515
  Serious: Yes (Hospitalization)
  Sender: FDA-Public Use
  Company Number: HU-ELI_LILLY_AND_COMPANY-HU201307007465

PATIENT
  Age: 44 Year
  Sex: Female

DRUGS (5)
  1. FORSTEO [Suspect]
     Indication: OSTEOPOROSIS
     Dosage: 20 UG/ 80UL, QD
     Route: 058
     Dates: start: 20130411
  2. CALCIUM [Concomitant]
     Dosage: UNK, UNKNOWN
     Route: 065
  3. VITAMIN D3 [Concomitant]
     Dosage: UNK, UNKNOWN
     Route: 065
  4. MEDROL [Concomitant]
     Dosage: 4 MG, UNKNOWN
     Route: 065
  5. CELEBREX [Concomitant]

REACTIONS (1)
  - Quadriplegia [Recovering/Resolving]
